FAERS Safety Report 12343509 (Version 1)
Quarter: 2016Q2

REPORT INFORMATION
  Report Type: Spontaneous
  Country: US (occurrence: US)
  Receive Date: 20160506
  Receipt Date: 20160506
  Transmission Date: 20160815
  Serious: No
  Sender: FDA-Public Use
  Company Number: US-GLAXOSMITHKLINE-US2016058258

PATIENT
  Sex: Male

DRUGS (17)
  1. CALCIUM WITH VITAMIN D [Concomitant]
     Active Substance: CALCIUM\VITAMIN D
  2. MYRBETRIQ [Concomitant]
     Active Substance: MIRABEGRON
  3. OMEPRAZOLE. [Concomitant]
     Active Substance: OMEPRAZOLE
  4. VITAMIN D3 [Concomitant]
     Active Substance: CHOLECALCIFEROL
  5. ASPIRIN. [Concomitant]
     Active Substance: ASPIRIN
  6. GLUCOSAMINE [Concomitant]
     Active Substance: GLUCOSAMINE
  7. TANZEUM [Suspect]
     Active Substance: ALBIGLUTIDE
     Indication: BLOOD GLUCOSE INCREASED
     Dosage: 50 MG, WE
     Route: 042
     Dates: start: 20160409
  8. GLIMEPIRIDE. [Concomitant]
     Active Substance: GLIMEPIRIDE
  9. PRAVASTATIN [Concomitant]
     Active Substance: PRAVASTATIN\PRAVASTATIN SODIUM
  10. POTASSIUM GLUCONATE [Concomitant]
     Active Substance: POTASSIUM GLUCONATE
  11. VITAMIN C [Concomitant]
     Active Substance: ASCORBIC ACID
  12. VITAMIN B12 [Concomitant]
     Active Substance: CYANOCOBALAMIN
  13. SYNTHROID [Concomitant]
     Active Substance: LEVOTHYROXINE SODIUM
  14. ZINC [Concomitant]
     Active Substance: ZINC\ZINC CHLORIDE
  15. COENZYME Q10 [Concomitant]
     Active Substance: UBIDECARENONE
  16. HUMULIN N [Concomitant]
     Active Substance: INSULIN HUMAN
  17. METOPROLOL. [Concomitant]
     Active Substance: METOPROLOL

REACTIONS (5)
  - Dyspepsia [Not Recovered/Not Resolved]
  - Muscle spasms [Not Recovered/Not Resolved]
  - Eructation [Not Recovered/Not Resolved]
  - Gastrointestinal disorder [Not Recovered/Not Resolved]
  - Flatulence [Not Recovered/Not Resolved]
